FAERS Safety Report 21006544 (Version 1)
Quarter: 2022Q2

REPORT INFORMATION
  Report Type: Report from Study
  Country: US (occurrence: US)
  Receive Date: 20220624
  Receipt Date: 20220624
  Transmission Date: 20220721
  Serious: Yes (Life-Threatening, Hospitalization, Other)
  Sender: FDA-Public Use
  Company Number: US-AMGEN-USACT2022106448

PATIENT
  Age: 82 Year
  Sex: Male
  Weight: 79.4 kg

DRUGS (1)
  1. AMG-510 [Suspect]
     Active Substance: AMG-510
     Indication: Lung adenocarcinoma
     Dosage: 960 MILLIGRAM, QD (TOTAL DOSE: 21120 MG)
     Route: 048
     Dates: start: 20220523, end: 20220613

REACTIONS (2)
  - Acute kidney injury [Recovering/Resolving]
  - Hypercalcaemia [Recovering/Resolving]

NARRATIVE: CASE EVENT DATE: 20220614
